FAERS Safety Report 23860329 (Version 1)
Quarter: 2024Q2

REPORT INFORMATION
  Report Type: Spontaneous
  Country: PR (occurrence: PR)
  Receive Date: 20240515
  Receipt Date: 20240515
  Transmission Date: 20240716
  Serious: No
  Sender: FDA-Public Use
  Company Number: PR-ABBVIE-5754689

PATIENT
  Age: 64 Year
  Sex: Female

DRUGS (1)
  1. MAVYRET [Suspect]
     Active Substance: GLECAPREVIR\PIBRENTASVIR
     Indication: Hepatitis C
     Dosage: TIME INTERVAL: 0.33333333 DAYS
     Route: 048

REACTIONS (1)
  - Inappropriate schedule of product administration [Unknown]
